FAERS Safety Report 9804008 (Version 1)
Quarter: 2014Q1

REPORT INFORMATION
  Report Type: Spontaneous
  Country: US (occurrence: US)
  Receive Date: 20140108
  Receipt Date: 20140108
  Transmission Date: 20141002
  Serious: Yes (Hospitalization)
  Sender: FDA-Public Use
  Company Number: US-PFIZER INC-2014004143

PATIENT
  Age: 74 Year
  Sex: Female
  Weight: 70.3 kg

DRUGS (2)
  1. XALATAN [Suspect]
     Indication: GLAUCOMA
     Dosage: 1 GTT, 1X/DAY
     Route: 047
  2. DILTIAZEM [Concomitant]
     Indication: CARDIAC DISORDER
     Dosage: 200 MG, 1X/DAY

REACTIONS (1)
  - Cardiac disorder [Unknown]
